FAERS Safety Report 10191332 (Version 1)
Quarter: 2014Q2

REPORT INFORMATION
  Report Type: Spontaneous
  Country: CA (occurrence: CA)
  Receive Date: 20140523
  Receipt Date: 20140523
  Transmission Date: 20141212
  Serious: Yes (Other)
  Sender: FDA-Public Use
  Company Number: CHPA2014CA006916

PATIENT
  Sex: Female

DRUGS (1)
  1. NEOCITRAN UNKNOWN [Suspect]
     Indication: NASOPHARYNGITIS
     Route: 048

REACTIONS (2)
  - Drug dependence [Unknown]
  - Therapeutic response changed [Unknown]
